FAERS Safety Report 24057824 (Version 1)
Quarter: 2024Q3

REPORT INFORMATION
  Report Type: Spontaneous
  Country: US (occurrence: US)
  Receive Date: 20240707
  Receipt Date: 20240707
  Transmission Date: 20241017
  Serious: Yes (Hospitalization, Other)
  Sender: DR REDDYS
  Company Number: US-DRL-USA-LIT/USA/24/0009683

PATIENT
  Age: 65 Year
  Sex: Female

DRUGS (2)
  1. SUCCINYLCHOLINE [Suspect]
     Active Substance: SUCCINYLCHOLINE
     Indication: Endotracheal intubation
  2. ETOMIDATE [Suspect]
     Active Substance: ETOMIDATE
     Indication: Endotracheal intubation

REACTIONS (4)
  - Hyperthermia malignant [Unknown]
  - Condition aggravated [Unknown]
  - Shock [Unknown]
  - Multiple organ dysfunction syndrome [Unknown]
